FAERS Safety Report 5622845-2 (Version None)
Quarter: 2008Q1

REPORT INFORMATION
  Report Type: 
  Country: None (occurrence: None)
  Receive Date: 20080206
  Receipt Date: 20080129
  Transmission Date: 20080703
  Serious: Yes (Hospitalization)
  Sender: FDA-Public Use
  Company Number: WAES 0712FRA00075

PATIENT
  Age: 46 Year
  Sex: Female

DRUGS (8)
  1. ISENTRESS [Suspect]
     Indication: HIV INFECTION
     Dosage: 400 MG/BID PO
     Route: 048
     Dates: start: 20071201
  2. ACEPROMAZINE (+) ACEPROMETAZINE (+) CLOR [Concomitant]
  3. ACETAMINOPHEN [Concomitant]
  4. AMITRIPTYLINE HYDROCHLORIDE [Concomitant]
  5. ATOVAQUONE [Concomitant]
  6. OMEPRAZOLE [Concomitant]
  7. RITONAVIR [Concomitant]
  8. TIPRANAVIR [Concomitant]

REACTIONS (1)
  - PANCREATITIS [None]
